FAERS Safety Report 18567351 (Version 3)
Quarter: 2021Q1

REPORT INFORMATION
  Report Type: Spontaneous
  Country: US (occurrence: US)
  Receive Date: 20201201
  Receipt Date: 20210303
  Transmission Date: 20210419
  Serious: No
  Sender: FDA-Public Use
  Company Number: US-BIOMARINAP-US-2020-133555

PATIENT
  Age: 39 Year
  Sex: Female

DRUGS (2)
  1. ALDURAZYME [Suspect]
     Active Substance: LARONIDASE
     Indication: MUCOPOLYSACCHARIDOSIS I
     Dosage: 26.1 MILLIGRAM, QW
     Route: 042
     Dates: start: 20050623
  2. ALDURAZYME [Suspect]
     Active Substance: LARONIDASE
     Dosage: 32 MILLIGRAM, QW
     Route: 042

REACTIONS (5)
  - Weight increased [Unknown]
  - Pyrexia [Unknown]
  - Malaise [Unknown]
  - Chest pain [Unknown]
  - Depression [Unknown]

NARRATIVE: CASE EVENT DATE: 2020
